FAERS Safety Report 6448618-9 (Version None)
Quarter: 2009Q4

REPORT INFORMATION
  Report Type: 
  Country: None (occurrence: None)
  Receive Date: 20091119
  Receipt Date: 20091119
  Transmission Date: 20100525
  Serious: Yes (Life-Threatening, Hospitalization)
  Sender: FDA-Public Use
  Company Number: None

PATIENT
  Age: 63 Year
  Sex: Male
  Weight: 117.6 kg

DRUGS (2)
  1. DICLOFENAC SODIUM [Suspect]
     Indication: HYPERTENSION
     Dosage: 750 MG BID PO
     Route: 048
     Dates: start: 20090602, end: 20091101
  2. HYDROCHLOROTHIAZIDE [Suspect]
     Indication: PAIN
     Dosage: 25 MG EVERY DAY PO
     Route: 048
     Dates: start: 20070607, end: 20091101

REACTIONS (4)
  - ASTHENIA [None]
  - CONFUSIONAL STATE [None]
  - HYPONATRAEMIA [None]
  - MENTAL STATUS CHANGES [None]
